FAERS Safety Report 18939917 (Version 3)
Quarter: 2021Q2

REPORT INFORMATION
  Report Type: Other
  Country: US (occurrence: US)
  Receive Date: 20210224
  Receipt Date: 20210406
  Transmission Date: 20210717
  Serious: Yes (Hospitalization)
  Sender: FDA-Public Use
  Company Number: US-ROCHE-2769242

PATIENT
  Age: 74 Year
  Sex: Female

DRUGS (2)
  1. BEVACIZUMAB. [Suspect]
     Active Substance: BEVACIZUMAB
     Indication: CHOROIDAL NEOVASCULARISATION
     Route: 050
  2. BEVACIZUMAB. [Suspect]
     Active Substance: BEVACIZUMAB
     Indication: AGE-RELATED MACULAR DEGENERATION

REACTIONS (20)
  - Panophthalmitis [Unknown]
  - Retinal pigmentation [Unknown]
  - Suspected transmission of an infectious agent via product [Unknown]
  - Necrotising scleritis [Unknown]
  - Lens disorder [Unknown]
  - Fat necrosis [Unknown]
  - Retinal infarction [Unknown]
  - Myositis [Unknown]
  - Ulcerative keratitis [Unknown]
  - Iritis [Unknown]
  - Retinitis [Unknown]
  - Off label use [Unknown]
  - Necrosis [Unknown]
  - Endophthalmitis [Unknown]
  - Choroidal sclerosis [Unknown]
  - Muscle fibrosis [Unknown]
  - Intentional product use issue [Unknown]
  - Lens dislocation [Unknown]
  - Retinal disorder [Unknown]
  - Corneal thickening [Unknown]
